FAERS Safety Report 5673835-5 (Version None)
Quarter: 2008Q1

REPORT INFORMATION
  Report Type: 
  Country: None (occurrence: None)
  Receive Date: 20080319
  Receipt Date: 20080313
  Transmission Date: 20080703
  Serious: Yes (Hospitalization)
  Sender: FDA-Public Use
  Company Number: FR-PFIZER INC-2008023318

PATIENT
  Sex: Male

DRUGS (5)
  1. SOLU-MEDROL [Suspect]
     Indication: SCIATICA
     Route: 048
     Dates: start: 20070525, end: 20070530
  2. ENOXAPARIN SODIUM [Suspect]
     Route: 058
  3. FENTANYL [Suspect]
     Indication: SCIATICA
     Route: 062
     Dates: start: 20070523, end: 20070531
  4. MORPHINE [Suspect]
     Indication: SCIATICA
     Dates: start: 20070525, end: 20070531
  5. ACETYLSALICYLATE LYSINE [Concomitant]
     Route: 048
     Dates: start: 20060101, end: 20070525

REACTIONS (1)
  - VASCULAR PURPURA [None]
